FAERS Safety Report 15014191 (Version 4)
Quarter: 2018Q3

REPORT INFORMATION
  Report Type: Spontaneous
  Country: HR (occurrence: HR)
  Receive Date: 20180615
  Receipt Date: 20180715
  Transmission Date: 20181010
  Serious: Yes (Other)
  Sender: FDA-Public Use
  Company Number: PHHY2018HR019823

PATIENT
  Age: 13 Year
  Sex: Female
  Weight: 60 kg

DRUGS (7)
  1. KETONAL [Suspect]
     Active Substance: KETOPROFEN
     Indication: PRODUCT USED FOR UNKNOWN INDICATION
     Dosage: 60 DF, QD
     Route: 048
     Dates: start: 20171201, end: 20171201
  2. KETONAL [Suspect]
     Active Substance: KETOPROFEN
     Dosage: 1 OT, QD
     Route: 048
  3. IBUPROFEN. [Suspect]
     Active Substance: IBUPROFEN
     Dosage: UNK
     Route: 048
  4. ANALGIN (METAMIZOLE SODIUM) [Suspect]
     Active Substance: METAMIZOLE SODIUM
     Indication: PRODUCT USED FOR UNKNOWN INDICATION
     Dosage: UNK
     Route: 048
  5. IBUPROFEN. [Suspect]
     Active Substance: IBUPROFEN
     Indication: PRODUCT USED FOR UNKNOWN INDICATION
     Dosage: 3600 MG, QD
     Route: 048
     Dates: start: 20171201, end: 20171201
  6. KETONAL [Suspect]
     Active Substance: KETOPROFEN
     Dosage: 1 DF, UNK
     Route: 048
  7. KETONAL [Suspect]
     Active Substance: KETOPROFEN
     Dosage: 20 DF, QD
     Route: 048

REACTIONS (3)
  - Intentional overdose [Unknown]
  - No adverse event [Unknown]
  - Suicide attempt [Unknown]

NARRATIVE: CASE EVENT DATE: 20171201
